FAERS Safety Report 17197477 (Version 9)
Quarter: 2020Q3

REPORT INFORMATION
  Report Type: Report from Study
  Country: US (occurrence: US)
  Receive Date: 20191224
  Receipt Date: 20200827
  Transmission Date: 20201102
  Serious: No
  Sender: FDA-Public Use
  Company Number: NVSC2019US076512

PATIENT
  Age: 83 Year
  Sex: Male

DRUGS (8)
  1. BEOVU [Suspect]
     Active Substance: BROLUCIZUMAB-DBLL
     Dosage: UNK
     Route: 047
  2. BEOVU [Suspect]
     Active Substance: BROLUCIZUMAB-DBLL
     Dosage: UNK
     Route: 065
     Dates: start: 20200605
  3. BEOVU [Suspect]
     Active Substance: BROLUCIZUMAB-DBLL
     Dosage: UNK
     Route: 047
  4. BEOVU [Suspect]
     Active Substance: BROLUCIZUMAB-DBLL
     Dosage: UNK
     Route: 047
     Dates: start: 20200724
  5. BEOVU [Suspect]
     Active Substance: BROLUCIZUMAB-DBLL
     Indication: NEOVASCULAR AGE-RELATED MACULAR DEGENERATION
     Dosage: UNK
     Route: 047
  6. BEOVU [Suspect]
     Active Substance: BROLUCIZUMAB-DBLL
     Dosage: UNK
     Route: 047
     Dates: start: 20200117
  7. BEOVU [Suspect]
     Active Substance: BROLUCIZUMAB-DBLL
     Dosage: UNK
     Route: 047
     Dates: start: 20200410
  8. BEOVU [Suspect]
     Active Substance: BROLUCIZUMAB-DBLL
     Dosage: UNK
     Route: 047
     Dates: start: 20200731

REACTIONS (11)
  - Visual impairment [Unknown]
  - Drug ineffective [Unknown]
  - Eye swelling [Recovering/Resolving]
  - Injection site pain [Recovered/Resolved]
  - Influenza [Unknown]
  - Vitreous floaters [Recovered/Resolved]
  - Eye pruritus [Unknown]
  - Ocular hyperaemia [Unknown]
  - Eye irritation [Recovering/Resolving]
  - Photophobia [Unknown]
  - Eye pain [Unknown]

NARRATIVE: CASE EVENT DATE: 20191206
